FAERS Safety Report 16786466 (Version 11)
Quarter: 2023Q4

REPORT INFORMATION
  Report Type: Report from Study
  Country: US (occurrence: US)
  Receive Date: 20190909
  Receipt Date: 20231002
  Transmission Date: 20240110
  Serious: Yes (Hospitalization, Other)
  Sender: FDA-Public Use
  Company Number: US-PFIZER INC-2018515265

PATIENT
  Age: 63 Year
  Sex: Male
  Weight: 104 kg

DRUGS (26)
  1. LYRICA [Suspect]
     Active Substance: PREGABALIN
     Indication: Diabetic neuropathy
     Dosage: 50 MG, 3X/DAY (MORNING NOON AND NIGHT, 270 CAPSULES)
     Route: 048
     Dates: start: 20150101, end: 202012
  2. LYRICA [Suspect]
     Active Substance: PREGABALIN
     Indication: Type 2 diabetes mellitus
     Dosage: 50 MILLIGRAM, TID (TAKE 1 CAPSULE BY MOUTH 3 TIMES A DAY AS DIRECTED BY PHYSICIAN)
     Route: 048
     Dates: start: 20230628
  3. LYRICA [Suspect]
     Active Substance: PREGABALIN
     Dosage: 50 MILLIGRAM, TID (TAKE 1 CAPSULE BY MOUTH 3 TIMES A DAY AS DIRECTED BY PHYSICIAN)
     Route: 048
     Dates: start: 20230922
  4. ALLOPURINOL [Concomitant]
     Active Substance: ALLOPURINOL
     Indication: Gout
     Dosage: 100 MG, 1X/DAY
     Route: 065
     Dates: start: 2018
  5. ALLOPURINOL [Concomitant]
     Active Substance: ALLOPURINOL
     Dosage: 100 MG, 1X/DAY
     Route: 065
     Dates: start: 20190101
  6. AMITRIPTYLINE [Concomitant]
     Active Substance: AMITRIPTYLINE
     Indication: Migraine
     Dosage: 50 MG, 1X/DAY (50 MG ONE AT BEDTIME)
     Route: 065
  7. AMITRIPTYLINE [Concomitant]
     Active Substance: AMITRIPTYLINE
     Indication: Neuropathy peripheral
     Dosage: 50 MG, (50MG 1OR 2 AT BEDTIME)
     Route: 065
     Dates: start: 20180101
  8. TAMSULOSIN [Concomitant]
     Active Substance: TAMSULOSIN
     Indication: Prostate infection
     Dosage: 0.4 MG, 1X/DAY REGIMEN DOSE UNIT: MILLIGRAM
     Route: 065
     Dates: start: 20180101
  9. FOLIC ACID [Concomitant]
     Active Substance: FOLIC ACID
     Indication: Product used for unknown indication
     Dosage: 1 MG, 1X/DAY REGIMEN DOSE UNIT: MILLIGRAM
     Route: 065
     Dates: start: 20180101
  10. CHLORTHALIDONE [Concomitant]
     Active Substance: CHLORTHALIDONE
     Indication: Product used for unknown indication
     Dosage: 25 MG, 1X/DAY REGIMEN DOSE UNIT: MILLIGRAM
     Route: 065
     Dates: start: 20180101
  11. BAYER ASPIRIN [Concomitant]
     Active Substance: ASPIRIN
     Indication: Migraine
     Dosage: 81 MG ONE IN MORNING
     Route: 065
     Dates: start: 20160101
  12. BAYER ASPIRIN [Concomitant]
     Active Substance: ASPIRIN
     Indication: Neuropathy peripheral
  13. CARVEDILOL [Concomitant]
     Active Substance: CARVEDILOL
     Indication: Product used for unknown indication
     Dosage: 6.5 MG BY MOUTH TWICE A DAY
     Route: 048
     Dates: start: 20160101
  14. FINASTERIDE [Concomitant]
     Active Substance: FINASTERIDE
     Indication: Polyuria
     Dosage: 5 MG, 1X/DAY REGIMEN DOSE UNIT: MILLIGRAM
     Route: 065
     Dates: start: 20160101
  15. FUROSEMIDE [Concomitant]
     Active Substance: FUROSEMIDE
     Indication: Polyuria
     Dosage: 40 MG, 2X/DAY REGIMEN DOSE UNIT: MILLIGRAM
     Route: 065
     Dates: start: 20170101
  16. GLIMEPIRIDE [Concomitant]
     Active Substance: GLIMEPIRIDE
     Indication: Diabetes mellitus
     Dosage: 4 MG, 2X/DAY REGIMEN DOSE UNIT: MILLIGRAM
     Route: 065
     Dates: start: 20160101
  17. LEVOTHYROXINE [Concomitant]
     Active Substance: LEVOTHYROXINE
     Indication: Thyroid disorder
     Dosage: 25 MG, 1X/DAY (IN MORNING BEFORE EATING) REGIMEN DOSE UNIT: MILLIGRAM
     Route: 048
     Dates: start: 20190101
  18. NOVOLIN 10R [Concomitant]
     Indication: Diabetes mellitus
     Dosage: UNK, 1X/DAY (SLIDING SCALE ON SUGAR COUNT IN MORNING) (70/30 INSULIN)
     Route: 058
     Dates: start: 20160101
  19. PRAVASTATIN [Concomitant]
     Active Substance: PRAVASTATIN
     Indication: Product used for unknown indication
     Dosage: 40 MG, 1X/DAY REGIMEN DOSE UNIT: MILLIGRAM
     Route: 048
     Dates: start: 20160101
  20. VALSARTAN [Concomitant]
     Active Substance: VALSARTAN
     Indication: Product used for unknown indication
     Dosage: 80 MG, 2X/DAY BREAK IN HALF IN MORNING AND HALF IN EVENING MILLIGRAM
     Route: 065
     Dates: start: 20160101
  21. LANTUS [Concomitant]
     Active Substance: INSULIN GLARGINE
     Indication: Diabetes mellitus
     Dosage: UNK, 1X/DAY (SLIDING SCALE AT BEDTIME)
     Route: 058
     Dates: start: 20150101
  22. FLOMAX [Concomitant]
     Active Substance: TAMSULOSIN HYDROCHLORIDE
     Indication: Product used for unknown indication
     Dosage: 0.4 MG, 1X/DAY REGIMEN DOSE UNIT: MILLIGRAM
     Route: 065
     Dates: start: 20170101
  23. AMLODIPINE BESYLATE [Concomitant]
     Active Substance: AMLODIPINE BESYLATE
     Indication: Product used for unknown indication
     Dosage: 5 MG, 1X/DAY REGIMEN DOSE UNIT: MILLIGRAM
     Route: 065
  24. BACLOFEN [Concomitant]
     Active Substance: BACLOFEN
     Indication: Product used for unknown indication
     Dosage: 10 MG, 1X/DAY (1 AT BEDTIME) REGIMEN DOSE UNIT: MILLIGRAM
     Route: 065
  25. MAGNESIUM [Concomitant]
     Active Substance: MAGNESIUM
     Indication: Product used for unknown indication
     Dosage: 400 MG, 1X/DAY REGIMEN DOSE UNIT: MILLIGRAM
     Route: 065
  26. PREDNISOLONE ACETATE [Concomitant]
     Active Substance: PREDNISOLONE ACETATE
     Indication: Product used for unknown indication
     Dosage: UNK
     Route: 047

REACTIONS (10)
  - Gangrene [Recovered/Resolved]
  - Procedural pain [Recovered/Resolved]
  - Dialysis [Unknown]
  - Eye ulcer [Unknown]
  - Restless legs syndrome [Unknown]
  - Pain in extremity [Unknown]
  - Insomnia [Unknown]
  - Drug ineffective [Unknown]
  - Expired product administered [Unknown]
  - Off label use [Unknown]

NARRATIVE: CASE EVENT DATE: 20150101
